FAERS Safety Report 7066052-8 (Version None)
Quarter: 2010Q4

REPORT INFORMATION
  Report Type: 
  Country: None (occurrence: None)
  Receive Date: 20101027
  Receipt Date: 20100924
  Transmission Date: 20110411
  Serious: Yes (Hospitalization, Other)
  Sender: FDA-Public Use
  Company Number: HQWYE193501NOV04

PATIENT
  Sex: Female

DRUGS (5)
  1. PREMPRO [Suspect]
  2. PREMARIN [Suspect]
     Indication: HORMONE REPLACEMENT THERAPY
  3. MEDROXYPROGESTERONE ACETATE [Suspect]
  4. ESTROGENS [Suspect]
  5. PROGESTOGENS [Suspect]

REACTIONS (1)
  - BREAST CANCER [None]
